FAERS Safety Report 6250073-9 (Version None)
Quarter: 2009Q2

REPORT INFORMATION
  Report Type: 
  Country: None (occurrence: None)
  Receive Date: 20090625
  Receipt Date: 20090616
  Transmission Date: 20091009
  Serious: Yes (Other)
  Sender: FDA-Public Use
  Company Number: ADE2009-0671

PATIENT
  Sex: Female

DRUGS (9)
  1. METFORMIN HCL [Suspect]
     Indication: DIABETES MELLITUS
     Dosage: ORAL
     Route: 048
  2. RITUXIMAB [Suspect]
     Indication: MYELITIS TRANSVERSE
     Dosage: IV
     Route: 042
  3. ALENDRONIC ACID [Concomitant]
  4. AMITRIPTYLINE [Concomitant]
  5. CALCICHEW D3 [Concomitant]
  6. GABAPENTIN [Concomitant]
  7. OMEPRAZOLE [Concomitant]
  8. PARACETAMOL [Concomitant]
  9. SOLIFENACIN [Concomitant]

REACTIONS (3)
  - ABDOMINAL SEPSIS [None]
  - LACTIC ACIDOSIS [None]
  - PNEUMONIA [None]
